FAERS Safety Report 5574324-9 (Version None)
Quarter: 2007Q4

REPORT INFORMATION
  Report Type: 
  Country: None (occurrence: None)
  Receive Date: 20071221
  Receipt Date: 20071209
  Transmission Date: 20080405
  Serious: Yes (Other)
  Sender: FDA-Public Use
  Company Number: 021480

PATIENT
  Age: 29 Year
  Sex: Female
  Weight: 56.7 kg

DRUGS (1)
  1. PLAN B [Suspect]
     Indication: POST COITAL CONTRACEPTION
     Dosage: 1 TABLET, Q12HR, ORAL
     Route: 048
     Dates: start: 20071127, end: 20071127

REACTIONS (4)
  - LOSS OF CONSCIOUSNESS [None]
  - PREGNANCY AFTER POST COITAL CONTRACEPTION [None]
  - SYNCOPE [None]
  - UNINTENDED PREGNANCY [None]
